FAERS Safety Report 7992818-3 (Version None)
Quarter: 2011Q4

REPORT INFORMATION
  Report Type: 
  Country: None (occurrence: None)
  Receive Date: 20111219
  Receipt Date: 20110802
  Transmission Date: 20120403
  Serious: No
  Sender: FDA-Public Use
  Company Number: US-ASTRAZENECA-2010SE54523

PATIENT
  Age: 84 Year
  Sex: Female

DRUGS (3)
  1. CRESTOR [Suspect]
     Route: 048
  2. SIMVASTATIN [Suspect]
     Route: 065
  3. LIPITOR [Concomitant]

REACTIONS (4)
  - HYPOACUSIS [None]
  - HYPERCHOLESTEROLAEMIA [None]
  - MYALGIA [None]
  - DRUG DOSE OMISSION [None]
